FAERS Safety Report 8644913 (Version 2)
Quarter: 2012Q4

REPORT INFORMATION
  Report Type: 
  Country: BR (occurrence: BR)
  Receive Date: 20120702
  Receipt Date: 20120920
  Transmission Date: 20130627
  Serious: Yes (Death)
  Sender: FDA-Public Use
  Company Number: BR-ELI_LILLY_AND_COMPANY-BR201206009118

PATIENT
  Age: 63 None
  Sex: Female

DRUGS (2)
  1. HUMALOG LISPRO [Suspect]
     Dosage: UNK, unknown
     Route: 065
  2. LANTUS [Concomitant]
     Dosage: UNK, unknown
     Route: 065

REACTIONS (1)
  - Acute myocardial infarction [Fatal]
